FAERS Safety Report 8181188-6 (Version None)
Quarter: 2012Q1

REPORT INFORMATION
  Report Type: 
  Country: None (occurrence: None)
  Receive Date: 20120302
  Receipt Date: 20120229
  Transmission Date: 20120608
  Serious: Yes (Hospitalization)
  Sender: FDA-Public Use
  Company Number: CH-GLAXOSMITHKLINE-B0652653A

PATIENT
  Sex: Female
  Weight: 41 kg

DRUGS (4)
  1. EPIRUBICIN [Suspect]
     Indication: NEOPLASM
     Dosage: 75MGM2 CYCLIC
     Route: 042
     Dates: start: 20100427
  2. VOTRIENT [Suspect]
     Indication: NEOPLASM
     Dosage: 400MG PER DAY
     Route: 048
     Dates: start: 20100428
  3. DEXAMETHASONE [Concomitant]
     Indication: NAUSEA
     Dosage: 4MG PER DAY
     Route: 048
     Dates: start: 20100429, end: 20100429
  4. DEXAMETHASONE [Concomitant]
     Indication: PROPHYLAXIS OF NAUSEA AND VOMITING
     Dosage: 8MG PER DAY
     Route: 042
     Dates: start: 20100427, end: 20100427

REACTIONS (3)
  - PYREXIA [None]
  - COUGH [None]
  - FEBRILE NEUTROPENIA [None]
